FAERS Safety Report 8293929-8 (Version None)
Quarter: 2012Q2

REPORT INFORMATION
  Report Type: 
  Country: None (occurrence: None)
  Receive Date: 20120418
  Receipt Date: 20120412
  Transmission Date: 20120825
  Serious: No
  Sender: FDA-Public Use
  Company Number: US-PFIZER INC-2012092418

PATIENT
  Sex: Male
  Weight: 148.75 kg

DRUGS (3)
  1. LYRICA [Suspect]
     Indication: NEURALGIA
     Dosage: 75 MG, 2X/DAY
     Dates: start: 20120206, end: 20120101
  2. GLUCOPHAGE [Concomitant]
     Indication: DIABETES MELLITUS
     Dosage: 1000 MG, 2X/DAY
  3. LYRICA [Suspect]
     Dosage: 75 MG, 2X/DAY
     Dates: start: 20120405

REACTIONS (3)
  - INSOMNIA [None]
  - DRUG INEFFECTIVE [None]
  - PAIN [None]
